FAERS Safety Report 11321698 (Version 2)
Quarter: 2016Q1

REPORT INFORMATION
  Report Type: Report from Study
  Country: DE (occurrence: DE)
  Receive Date: 20150729
  Receipt Date: 20160309
  Transmission Date: 20160525
  Serious: Yes (Death, Other)
  Sender: FDA-Public Use
  Company Number: DE-CELGENE-DEU-2015074941

PATIENT

DRUGS (2)
  1. POMALIDOMIDE [Suspect]
     Active Substance: POMALIDOMIDE
     Indication: PLASMA CELL MYELOMA
     Route: 048
  2. DEXAMETHASONE. [Concomitant]
     Active Substance: DEXAMETHASONE
     Indication: PLASMA CELL MYELOMA
     Route: 065

REACTIONS (42)
  - Neoplasm [Fatal]
  - Fracture [Unknown]
  - Back pain [Unknown]
  - Acute coronary syndrome [Unknown]
  - Renal disorder [Fatal]
  - Spinal fracture [Unknown]
  - Musculoskeletal disorder [Unknown]
  - Bone pain [Unknown]
  - Embolism [Unknown]
  - Acute kidney injury [Unknown]
  - Malaise [Unknown]
  - Fall [Unknown]
  - Gastrointestinal disorder [Unknown]
  - Troponin T increased [Unknown]
  - Skin disorder [Unknown]
  - Wound infection [Unknown]
  - Angiopathy [Unknown]
  - Leukopenia [Unknown]
  - Lung infection [Fatal]
  - Blood disorder [Unknown]
  - Rectal haemorrhage [Unknown]
  - Pyrexia [Unknown]
  - Pneumonitis [Fatal]
  - Respiratory disorder [Fatal]
  - Conduction disorder [Unknown]
  - Sudden death [Fatal]
  - Adverse event [Fatal]
  - Infection [Unknown]
  - Death [Fatal]
  - Multiple organ dysfunction syndrome [Fatal]
  - Pulmonary oedema [Unknown]
  - Ataxia [Unknown]
  - Febrile neutropenia [Unknown]
  - Dyspnoea [Unknown]
  - Bronchitis [Unknown]
  - Anaemia [Unknown]
  - Cardiac arrest [Fatal]
  - Post procedural complication [Fatal]
  - Adverse event [Unknown]
  - Osteonecrosis of jaw [Unknown]
  - Sepsis [Unknown]
  - Respiratory tract infection [Unknown]
